FAERS Safety Report 12993313 (Version 1)
Quarter: 2016Q4

REPORT INFORMATION
  Report Type: Spontaneous
  Country: US (occurrence: US)
  Receive Date: 20161201
  Receipt Date: 20161201
  Transmission Date: 20170207
  Serious: Yes (Death)
  Sender: FDA-Public Use
  Company Number: None

PATIENT
  Age: 80 Year
  Sex: Male

DRUGS (1)
  1. CEFTRIAXONE 1GM VAIL APOTEX [Suspect]
     Active Substance: CEFTRIAXONE
     Indication: SEPSIS
     Dosage: 2GM Q24H IV
     Route: 042
     Dates: start: 20161118, end: 20161121

REACTIONS (2)
  - Asthenia [None]
  - Nausea [None]

NARRATIVE: CASE EVENT DATE: 20161121
